FAERS Safety Report 8139602-8 (Version None)
Quarter: 2012Q1

REPORT INFORMATION
  Report Type: 
  Country: None (occurrence: None)
  Receive Date: 20120215
  Receipt Date: 20120203
  Transmission Date: 20120608
  Serious: Yes (Hospitalization)
  Sender: FDA-Public Use
  Company Number: PHHY2009AU45684

PATIENT
  Sex: Female

DRUGS (3)
  1. CLOZARIL [Suspect]
     Dosage: 12.5 MG, UNK
     Route: 048
     Dates: start: 20081231
  2. CLOZARIL [Suspect]
     Dosage: UNK UKN, UNK
     Dates: start: 20091019
  3. CLOZARIL [Suspect]
     Dosage: 12.5 MG, UNK
     Dates: start: 20120131

REACTIONS (3)
  - PSYCHOTIC DISORDER [None]
  - MENTAL DISORDER [None]
  - PHYSICAL EXAMINATION ABNORMAL [None]
